FAERS Safety Report 4763925-3 (Version None)
Quarter: 2005Q3

REPORT INFORMATION
  Report Type: 
  Country: None (occurrence: None)
  Receive Date: 20050906
  Receipt Date: 20050526
  Transmission Date: 20060218
  Serious: No
  Sender: FDA-Public Use
  Company Number: 2005-BP-08880BP

PATIENT
  Sex: 0

DRUGS (1)
  1. SPIRIVA [Suspect]
     Dosage: 18 MCG IH
     Route: 055

REACTIONS (1)
  - IRRITABILITY [None]
